FAERS Safety Report 9442700 (Version 2)
Quarter: 2013Q3

REPORT INFORMATION
  Report Type: Spontaneous
  Country: GB (occurrence: GB)
  Receive Date: 20130806
  Receipt Date: 20130904
  Transmission Date: 20140515
  Serious: Yes (Other)
  Sender: FDA-Public Use
  Company Number: PHHY2013GB081629

PATIENT
  Age: 39 Year
  Sex: Female

DRUGS (7)
  1. TRIAMCINOLONE [Suspect]
     Indication: BACK PAIN
     Dosage: 2 DF
     Route: 008
  2. TRIAMCINOLONE [Interacting]
     Indication: PAIN IN EXTREMITY
  3. RITONAVIR [Interacting]
     Indication: ANTIRETROVIRAL THERAPY
  4. TENOFOVIR [Concomitant]
     Indication: ANTIRETROVIRAL THERAPY
  5. EMTRICITABINE [Concomitant]
     Indication: ANTIRETROVIRAL THERAPY
  6. DARUNAVIR [Concomitant]
     Indication: ANTIRETROVIRAL THERAPY
  7. BUPIVACAINE [Concomitant]
     Indication: ANTIRETROVIRAL THERAPY

REACTIONS (8)
  - Adrenal suppression [Recovering/Resolving]
  - Cushing^s syndrome [Unknown]
  - Malaise [Unknown]
  - Acne [Unknown]
  - Swelling face [Unknown]
  - Drug interaction [Unknown]
  - Oropharyngeal pain [Unknown]
  - Oral candidiasis [Unknown]
